FAERS Safety Report 19013863 (Version 2)
Quarter: 2021Q2

REPORT INFORMATION
  Report Type: Report from Study
  Country: None (occurrence: GB)
  Receive Date: 20210315
  Receipt Date: 20210617
  Transmission Date: 20210717
  Serious: No
  Sender: FDA-Public Use
  Company Number: GB-ABBVIE-21K-167-3780051-00

PATIENT
  Age: 48 Year
  Sex: Female

DRUGS (2)
  1. HUMIRA [Suspect]
     Active Substance: ADALIMUMAB
     Indication: COLITIS ULCERATIVE
     Route: 058
     Dates: start: 20160713, end: 201805
  2. FEMOSTAN [Concomitant]
     Indication: HORMONE REPLACEMENT THERAPY
     Dosage: DOSE? 1/10MG
     Route: 048
     Dates: start: 20150205

REACTIONS (1)
  - Hair follicle tumour benign [Recovered/Resolved]

NARRATIVE: CASE EVENT DATE: 20190924
